FAERS Safety Report 22231986 (Version 1)
Quarter: 2023Q2

REPORT INFORMATION
  Report Type: Spontaneous
  Country: US (occurrence: None)
  Receive Date: 20230420
  Receipt Date: 20230420
  Transmission Date: 20230722
  Serious: No
  Sender: FDA-Public Use
  Company Number: US-ROCHE-3125712

PATIENT
  Sex: Male

DRUGS (19)
  1. ESBRIET [Suspect]
     Active Substance: PIRFENIDONE
     Indication: Idiopathic pulmonary fibrosis
     Route: 048
  2. ESBRIET [Suspect]
     Active Substance: PIRFENIDONE
     Route: 048
  3. ESBRIET [Suspect]
     Active Substance: PIRFENIDONE
     Indication: Idiopathic pulmonary fibrosis
     Route: 048
     Dates: start: 20220517
  4. ESBRIET [Suspect]
     Active Substance: PIRFENIDONE
     Route: 048
  5. ESBRIET [Suspect]
     Active Substance: PIRFENIDONE
     Route: 048
  6. VITAMIN D3 [Concomitant]
     Active Substance: CHOLECALCIFEROL
     Dosage: 30MCG / 15ML
  7. ASPIRIN [Concomitant]
     Active Substance: ASPIRIN
  8. ALLOPURINOL [Concomitant]
     Active Substance: ALLOPURINOL
  9. AMIODARONE [Concomitant]
     Active Substance: AMIODARONE
  10. ATORVASTATIN [Concomitant]
     Active Substance: ATORVASTATIN
  11. BUMETANIDE [Concomitant]
     Active Substance: BUMETANIDE
  12. CARVEDILOL [Concomitant]
     Active Substance: CARVEDILOL
  13. FAMOTIDINE [Concomitant]
     Active Substance: FAMOTIDINE
  14. GEMFIBROZIL [Concomitant]
     Active Substance: GEMFIBROZIL
  15. GLIPIZIDE [Concomitant]
     Active Substance: GLIPIZIDE
  16. HYDRALAZINE [Concomitant]
     Active Substance: HYDRALAZINE HYDROCHLORIDE
  17. LANTUS SOLOSTAR [Concomitant]
     Active Substance: INSULIN GLARGINE
  18. LISINOPRIL [Concomitant]
     Active Substance: LISINOPRIL
  19. OMEPRAZOLE [Concomitant]
     Active Substance: OMEPRAZOLE

REACTIONS (1)
  - Abdominal pain upper [Recovered/Resolved]
